FAERS Safety Report 8775127 (Version 1)
Quarter: 2012Q4

REPORT INFORMATION
  Report Type: Report from Study
  Country: JP (occurrence: JP)
  Receive Date: 20120910
  Receipt Date: 20120910
  Transmission Date: 20130627
  Serious: Yes (Other)
  Sender: FDA-Public Use
  Company Number: JP-009507513-1209JPN000686

PATIENT

DRUGS (9)
  1. REBETOL [Suspect]
     Indication: HEPATITIS C
     Dosage: 200 mg, bid
     Route: 048
     Dates: start: 20110916, end: 20110916
  2. REBETOL [Suspect]
     Dosage: 400 mg, bid
     Route: 048
     Dates: start: 20110917, end: 20111027
  3. REBETOL [Suspect]
     Dosage: 200 mg, qd
     Route: 048
     Dates: start: 20111028, end: 20111110
  4. REBETOL [Suspect]
     Dosage: 200 mg qam, 400 mg qpm
     Route: 048
     Dates: start: 20111111, end: 20111227
  5. FERON [Suspect]
     Indication: HEPATITIS C
     Dosage: 3 million IU, qd
     Route: 042
     Dates: start: 20110916, end: 20110916
  6. FERON [Suspect]
     Dosage: 3 million IU, bid
     Route: 042
     Dates: start: 20110917, end: 20110919
  7. FERON [Suspect]
     Dosage: 3 million IU, qd
     Route: 042
     Dates: start: 20110920, end: 20110930
  8. LOXOPROFEN [Concomitant]
     Indication: PROPHYLAXIS
     Dosage: 120 mg, UNK
     Route: 048
     Dates: start: 20110916, end: 20111227
  9. MUCOSTA [Concomitant]
     Indication: PROPHYLAXIS AGAINST GASTROINTESTINAL ULCER
     Dosage: 200 mg, UNK
     Route: 048
     Dates: start: 20110916, end: 20111227

REACTIONS (2)
  - Neutrophil count decreased [Recovered/Resolved]
  - Pyrexia [Recovered/Resolved]
